FAERS Safety Report 22054805 (Version 2)
Quarter: 2023Q2

REPORT INFORMATION
  Report Type: Spontaneous
  Country: US (occurrence: US)
  Receive Date: 20230302
  Receipt Date: 20230511
  Transmission Date: 20230721
  Serious: Yes (Hospitalization)
  Sender: FDA-Public Use
  Company Number: US-002147023-NVSC2023US042089

PATIENT
  Age: 31 Year
  Sex: Male
  Weight: 123 kg

DRUGS (2)
  1. CANAKINUMAB [Suspect]
     Active Substance: CANAKINUMAB
     Indication: Pyogenic sterile arthritis pyoderma gangrenosum and acne syndrome
     Dosage: UNK
     Route: 058
     Dates: start: 202211
  2. CANAKINUMAB [Suspect]
     Active Substance: CANAKINUMAB
     Indication: Hidradenitis

REACTIONS (4)
  - Pneumonitis [Not Recovered/Not Resolved]
  - Pneumonia [Not Recovered/Not Resolved]
  - Abdominal pain [Not Recovered/Not Resolved]
  - Product use in unapproved indication [Unknown]

NARRATIVE: CASE EVENT DATE: 20221101
